FAERS Safety Report 6406279-9 (Version None)
Quarter: 2009Q4

REPORT INFORMATION
  Report Type: 
  Country: None (occurrence: None)
  Receive Date: 20091019
  Receipt Date: 20091006
  Transmission Date: 20100525
  Serious: Yes (Hospitalization, Other)
  Sender: FDA-Public Use
  Company Number: PHEH2008US03185

PATIENT
  Sex: Female

DRUGS (12)
  1. ZOMETA [Suspect]
     Indication: RESORPTION BONE INCREASED
     Dosage: 4 MG, UNK
  2. CARBOPLATIN [Concomitant]
  3. TAXOTERE [Concomitant]
  4. HERCEPTIN [Concomitant]
  5. BENADRYL ^ACHE^ [Concomitant]
  6. ACETAMINOPHEN [Concomitant]
  7. ARANESP [Concomitant]
  8. DECADRON                                /CAN/ [Concomitant]
  9. PAXIL [Concomitant]
  10. NEUPOGEN [Concomitant]
  11. NEULASTA [Concomitant]
     Dosage: 6 MG SUBCUTANEOUSLY
     Route: 058
  12. PROCRIT                            /00909301/ [Concomitant]
     Dosage: 40 K UNITS

REACTIONS (62)
  - ABDOMINAL PAIN UPPER [None]
  - ANAEMIA [None]
  - ANXIETY [None]
  - ARTHRALGIA [None]
  - BACK PAIN [None]
  - BONE DISORDER [None]
  - BREAST PROSTHESIS IMPLANTATION [None]
  - CERVIX CARCINOMA [None]
  - CLOSTRIDIUM DIFFICILE COLITIS [None]
  - COLITIS [None]
  - DECREASED APPETITE [None]
  - DIARRHOEA [None]
  - DYSARTHRIA [None]
  - DYSPLASIA [None]
  - DYSPNOEA [None]
  - EMOTIONAL DISTRESS [None]
  - EMPHYSEMA [None]
  - FACIAL PALSY [None]
  - GAIT DISTURBANCE [None]
  - HALLUCINATION [None]
  - HEADACHE [None]
  - HEMIPLEGIA [None]
  - HEPATIC ENZYME INCREASED [None]
  - HYPERCHOLESTEROLAEMIA [None]
  - HYPOAESTHESIA [None]
  - IMPLANT SITE INFECTION [None]
  - INFECTION [None]
  - INJURY [None]
  - MALAISE [None]
  - MEDICAL DEVICE REMOVAL [None]
  - MEMORY IMPAIRMENT [None]
  - MESENTERIC VASCULAR INSUFFICIENCY [None]
  - MUSCLE SPASMS [None]
  - MUSCULOSKELETAL PAIN [None]
  - NEUROPATHY PERIPHERAL [None]
  - NEUTROPENIA [None]
  - OSTEOARTHRITIS [None]
  - OSTEONECROSIS [None]
  - PAIN [None]
  - PAIN IN JAW [None]
  - PANCYTOPENIA [None]
  - PARAESTHESIA [None]
  - PHYSICAL DISABILITY [None]
  - PYREXIA [None]
  - RADIATION ASSOCIATED PAIN [None]
  - RADICAL HYSTERECTOMY [None]
  - RADICULOPATHY [None]
  - RASH ERYTHEMATOUS [None]
  - REFLUX OESOPHAGITIS [None]
  - RENAL PAIN [None]
  - SALIVARY GLAND ENLARGEMENT [None]
  - SCAR [None]
  - SEDATION [None]
  - SINUSITIS [None]
  - SPINAL NERVE STIMULATOR IMPLANTATION [None]
  - SUICIDAL IDEATION [None]
  - SURGERY [None]
  - SWELLING FACE [None]
  - TOOTHACHE [None]
  - TRISMUS [None]
  - WALKING AID USER [None]
  - WEIGHT INCREASED [None]
